FAERS Safety Report 4807177-4 (Version None)
Quarter: 2005Q4

REPORT INFORMATION
  Report Type: 
  Country: None (occurrence: None)
  Receive Date: 20051024
  Receipt Date: 20051013
  Transmission Date: 20060501
  Serious: Yes (Other)
  Sender: FDA-Public Use
  Company Number: 2005PK01901

PATIENT
  Age: 75 Year
  Sex: Female

DRUGS (3)
  1. SEROQUEL [Suspect]
     Route: 048
  2. SINTROM [Interacting]
     Indication: ATRIAL FIBRILLATION
     Dates: start: 20050423, end: 20050509
  3. SINTROM [Interacting]
     Indication: ATRIAL FLUTTER
     Dates: start: 20050423, end: 20050509

REACTIONS (2)
  - DRUG INTERACTION [None]
  - PROTHROMBIN TIME PROLONGED [None]
